FAERS Safety Report 20145738 (Version 1)
Quarter: 2021Q4

REPORT INFORMATION
  Report Type: Spontaneous
  Country: CN (occurrence: CN)
  Receive Date: 20211203
  Receipt Date: 20211203
  Transmission Date: 20220303
  Serious: Yes (Other)
  Sender: FDA-Public Use
  Company Number: CN-SA-2021SA403419

PATIENT
  Age: 46 Year
  Sex: Female

DRUGS (2)
  1. OXALIPLATIN [Suspect]
     Active Substance: OXALIPLATIN
     Indication: Chemotherapy
     Dosage: UNK
     Dates: start: 202010, end: 202103
  2. CAPECITABINE [Suspect]
     Active Substance: CAPECITABINE
     Indication: Chemotherapy
     Dosage: UNK
     Dates: start: 202010, end: 202103

REACTIONS (7)
  - Drug-induced liver injury [Unknown]
  - Peliosis hepatis [Unknown]
  - Hepatic vein dilatation [Unknown]
  - Hepatic neoplasm [Unknown]
  - Necrosis [Unknown]
  - Hepatic haemorrhage [Unknown]
  - Venoocclusive liver disease [Unknown]
